FAERS Safety Report 4867278-1 (Version None)
Quarter: 2005Q4

REPORT INFORMATION
  Report Type: 
  Country: None (occurrence: None)
  Receive Date: 20051228
  Receipt Date: 20051219
  Transmission Date: 20060501
  Serious: Yes (Other)
  Sender: FDA-Public Use
  Company Number: DE-JNJFOC-20051101299

PATIENT
  Sex: Male
  Weight: 36 kg

DRUGS (2)
  1. CONCERTA [Suspect]
     Route: 048
  2. CONCERTA [Suspect]
     Route: 048

REACTIONS (3)
  - HYPERTENSION [None]
  - MUSCULOSKELETAL DISCOMFORT [None]
  - TACHYCARDIA [None]
